FAERS Safety Report 24240026 (Version 1)
Quarter: 2024Q3

REPORT INFORMATION
  Report Type: Spontaneous
  Country: US (occurrence: US)
  Receive Date: 20240822
  Receipt Date: 20240822
  Transmission Date: 20241016
  Serious: No
  Sender: PFIZER
  Company Number: US-PFIZER INC-202400241280

PATIENT
  Age: 50 Year
  Sex: Female
  Weight: 86.18 kg

DRUGS (2)
  1. NURTEC ODT [Suspect]
     Active Substance: RIMEGEPANT SULFATE
     Indication: Migraine
     Dosage: 75MG TAKE 1 TABLET ON THE ONSET OF A MIGRAINE AND NO MORE WITHIN A 24 HOUR PERIOD
     Dates: start: 20240806, end: 20240808
  2. MAXALT [Concomitant]
     Active Substance: RIZATRIPTAN BENZOATE
     Indication: Migraine
     Dosage: 10MG SHE TAKES ABOUT 9 TABLETS A MONTH AS NEEDED

REACTIONS (1)
  - Drug ineffective [Not Recovered/Not Resolved]

NARRATIVE: CASE EVENT DATE: 20240807
